FAERS Safety Report 22606185 (Version 1)
Quarter: 2023Q2

REPORT INFORMATION
  Report Type: Spontaneous
  Country: US (occurrence: None)
  Receive Date: 20230614
  Receipt Date: 20230614
  Transmission Date: 20230721
  Serious: No
  Sender: FDA-Public Use
  Company Number: None

PATIENT
  Sex: Male

DRUGS (11)
  1. TASIGNA [Suspect]
     Active Substance: NILOTINIB
     Indication: Chronic myeloid leukaemia
     Dosage: FREQUENCY : AS DIRECTED;?
     Route: 048
  2. BASAGLAR [Concomitant]
     Active Substance: INSULIN GLARGINE
  3. METOPROLOL [Concomitant]
     Active Substance: METOPROLOL
  4. MULTIVITAMIN [Concomitant]
  5. MELATONIN [Concomitant]
  6. JARDIANCE [Concomitant]
     Active Substance: EMPAGLIFLOZIN
  7. AMLODIPINE [Concomitant]
  8. ROSUVASTATIN [Concomitant]
  9. ASPIRIN [Concomitant]
     Active Substance: ASPIRIN
  10. EZETIMIBE [Concomitant]
     Active Substance: EZETIMIBE
  11. LISINOPRIL [Concomitant]

REACTIONS (1)
  - Liver function test increased [None]
